FAERS Safety Report 8611393-3 (Version None)
Quarter: 2012Q3

REPORT INFORMATION
  Report Type: 
  Country: None (occurrence: None)
  Receive Date: 20120822
  Receipt Date: 20120817
  Transmission Date: 20120928
  Serious: Yes (Death, Other)
  Sender: FDA-Public Use
  Company Number: TH-PFIZER INC-2012188731

PATIENT
  Age: 85 Year
  Sex: Female

DRUGS (8)
  1. TRAMADOL HYDROCHLORIDE [Suspect]
     Indication: HEADACHE
     Dosage: INJECTION, 1 DOSE
     Dates: start: 20120729
  2. AMITRIPTYLINE HCL [Suspect]
     Indication: HEADACHE
     Dosage: UNK
  3. PARECOXIB SODIUM [Suspect]
     Dosage: INJECTION, 1 DOSE
     Dates: start: 20120729
  4. KETOROLAC [Suspect]
     Indication: HEADACHE
     Dosage: INJECTION, 1 DOSE
     Dates: start: 20120729
  5. PARECOXIB SODIUM [Suspect]
     Indication: HEADACHE
     Dosage: INJECTION, 1 DOSE
     Dates: start: 20120728
  6. BELLERGAL [Suspect]
     Indication: HEADACHE
     Dosage: UNK
     Dates: start: 20120729
  7. RELPAX [Suspect]
     Indication: HEADACHE
     Dosage: 40 MG, AS NEEDED
     Route: 048
     Dates: start: 20120729
  8. SIBELIUM [Suspect]
     Indication: HEADACHE
     Dosage: UNK

REACTIONS (4)
  - NAUSEA [None]
  - MYOCARDIAL INFARCTION [None]
  - CARDIAC ARREST [None]
  - BLOOD PRESSURE DECREASED [None]
